FAERS Safety Report 8516217-0 (Version None)
Quarter: 2012Q3

REPORT INFORMATION
  Report Type: 
  Country: None (occurrence: None)
  Receive Date: 20120717
  Receipt Date: 20120709
  Transmission Date: 20120928
  Serious: Yes (Other)
  Sender: FDA-Public Use
  Company Number: US-009507513-1207USA002798

PATIENT

DRUGS (3)
  1. METFORMIN HYDROCHLORIDE [Concomitant]
  2. JANUVIA [Suspect]
     Indication: TYPE 2 DIABETES MELLITUS
     Route: 048
  3. INDERAL [Concomitant]

REACTIONS (1)
  - PANCREATITIS [None]
